FAERS Safety Report 23330439 (Version 1)
Quarter: 2023Q4

REPORT INFORMATION
  Report Type: Spontaneous
  Country: US (occurrence: US)
  Receive Date: 20231222
  Receipt Date: 20231222
  Transmission Date: 20240109
  Serious: No
  Sender: FDA-Public Use
  Company Number: US-EDENBRIDGE PHARMACEUTICALS, LLC-US-2023EDE000031

PATIENT
  Sex: Female

DRUGS (2)
  1. IVERMECTIN [Suspect]
     Active Substance: IVERMECTIN
     Indication: Post-acute COVID-19 syndrome
     Dosage: UNK
     Route: 048
     Dates: start: 202302, end: 202303
  2. IVERMECTIN [Suspect]
     Active Substance: IVERMECTIN
     Dosage: UNK
     Route: 048
     Dates: start: 20230318

REACTIONS (1)
  - Product use in unapproved indication [Unknown]

NARRATIVE: CASE EVENT DATE: 20230101
